FAERS Safety Report 8950663 (Version 4)
Quarter: 2013Q1

REPORT INFORMATION
  Report Type: Spontaneous
  Country: JP (occurrence: JP)
  Receive Date: 20121207
  Receipt Date: 20130113
  Transmission Date: 20140127
  Serious: No
  Sender: FDA-Public Use
  Company Number: JP-009507513-1212JPN000773

PATIENT
  Age: 72 Year
  Sex: Female
  Weight: 52 kg

DRUGS (9)
  1. PEGINTRON [Suspect]
     Indication: CHRONIC HEPATITIS C
     Dosage: 1.5 MICROGRAM PER KILOGRAM, QW
     Route: 058
     Dates: start: 20121102, end: 20121109
  2. PEGINTRON [Suspect]
     Dosage: 1 MICROGRAM PER KILOGRAM, QW
     Route: 058
     Dates: start: 20121116
  3. REBETOL [Suspect]
     Indication: CHRONIC HEPATITIS C
     Dosage: 600 MG, QD,
     Route: 048
     Dates: start: 20121102
  4. TELAVIC [Suspect]
     Indication: CHRONIC HEPATITIS C
     Dosage: 1500 MG, QD
     Route: 048
     Dates: start: 20121102
  5. URSO [Concomitant]
     Indication: CHRONIC HEPATITIS C
     Dosage: 600 MG, QD
     Route: 048
  6. BLOPRESS [Concomitant]
     Dosage: 8 MG, QD
     Route: 048
  7. ZETIA [Concomitant]
     Dosage: 10 MG, QD
     Route: 048
  8. BENET [Concomitant]
     Dosage: 17.5 MG, QD
     Route: 048
  9. FEBURIC [Concomitant]
     Indication: PROPHYLAXIS
     Dosage: 10 MG, QD
     Route: 048
     Dates: start: 20121102

REACTIONS (1)
  - White blood cell count decreased [Recovering/Resolving]
